FAERS Safety Report 9837764 (Version 1)
Quarter: 2013Q4

REPORT INFORMATION
  Report Type: Spontaneous
  Country: US (occurrence: None)
  Receive Date: 20131205
  Receipt Date: 20131205
  Transmission Date: 20140711
  Serious: Yes (Other)
  Sender: FDA-Public Use
  Company Number: 163-POMAL-13102066

PATIENT
  Age: 72 Year
  Sex: Female

DRUGS (2)
  1. POMALYST (POMALIDOMIDE) (4 MILLIGRAM, CAPSULES) [Suspect]
     Route: 048
     Dates: start: 201307, end: 2013
  2. POTASSIUM (POTASSIUM) [Concomitant]

REACTIONS (1)
  - Alopecia [None]
